FAERS Safety Report 5419217-2 (Version None)
Quarter: 2007Q3

REPORT INFORMATION
  Report Type: 
  Country: None (occurrence: None)
  Receive Date: 20070817
  Receipt Date: 20070817
  Transmission Date: 20080115
  Serious: Yes (Other)
  Sender: FDA-Public Use
  Company Number: None

PATIENT
  Age: 61 Year
  Sex: Female
  Weight: 89.3586 kg

DRUGS (1)
  1. CHANTIX [Suspect]
     Indication: SMOKER
     Dosage: 1 MG BID PO
     Route: 048
     Dates: start: 20070621, end: 20070731

REACTIONS (1)
  - LIVER FUNCTION TEST ABNORMAL [None]
